FAERS Safety Report 8585556 (Version 4)
Quarter: 2014Q2

REPORT INFORMATION
  Report Type: Spontaneous
  Country: SK (occurrence: SK)
  Receive Date: 20120530
  Receipt Date: 20140623
  Transmission Date: 20141212
  Serious: Yes (Other)
  Sender: FDA-Public Use
  Company Number: SK-PFIZER INC-2012127897

PATIENT
  Age: 70 Year
  Sex: Female

DRUGS (7)
  1. SUNITINIB MALATE [Suspect]
     Dosage: UNK
     Dates: start: 20100622, end: 20120517
  2. PREDNISONE [Concomitant]
     Dosage: 20 MG, UNK
  3. GOPTEN ^ABBOTT^ [Concomitant]
     Dosage: 2 MG, DAILY
     Dates: start: 20110707
  4. MAGNESIUM [Concomitant]
     Dosage: UNK
  5. VERAPAMIL [Concomitant]
     Dosage: UNK
  6. HYDROCHLOROTHIAZID [Concomitant]
     Dosage: UNK
  7. FAKTU [Concomitant]
     Dosage: UNK

REACTIONS (1)
  - Pulmonary toxicity [Unknown]
